FAERS Safety Report 5670615-1 (Version None)
Quarter: 2008Q1

REPORT INFORMATION
  Report Type: 
  Country: None (occurrence: None)
  Receive Date: 20080314
  Receipt Date: 20080314
  Transmission Date: 20080703
  Serious: Yes (Other)
  Sender: FDA-Public Use
  Company Number: None

PATIENT
  Age: 49 Year
  Sex: Female
  Weight: 77.1115 kg

DRUGS (1)
  1. CHANTIX [Suspect]
     Indication: SMOKING CESSATION THERAPY
     Dates: start: 20080214, end: 20080313

REACTIONS (8)
  - ABNORMAL DREAMS [None]
  - ANXIETY [None]
  - DYSGEUSIA [None]
  - FEAR [None]
  - FEELING ABNORMAL [None]
  - HALLUCINATION [None]
  - PAROSMIA [None]
  - TREMOR [None]
